FAERS Safety Report 4657751-3 (Version None)
Quarter: 2005Q2

REPORT INFORMATION
  Report Type: 
  Country: None (occurrence: None)
  Receive Date: 20050404
  Receipt Date: 20041216
  Transmission Date: 20051028
  Serious: No
  Sender: FDA-Public Use
  Company Number: USA041286530

PATIENT
  Age: 18 Year
  Sex: Male

DRUGS (3)
  1. CYMBALTA [Suspect]
     Indication: DEPRESSION
     Dosage: 60 MG DAY
     Dates: start: 20040101
  2. ANTIBIOTIC [Concomitant]
  3. EFFEXOR [Concomitant]

REACTIONS (3)
  - BRONCHITIS [None]
  - SOMNOLENCE [None]
  - TREMOR [None]
